FAERS Safety Report 7612011-3 (Version None)
Quarter: 2011Q3

REPORT INFORMATION
  Report Type: 
  Country: None (occurrence: None)
  Receive Date: 20110715
  Receipt Date: 20110708
  Transmission Date: 20111222
  Serious: Yes (Other)
  Sender: FDA-Public Use
  Company Number: US-JNJFOC-20110704377

PATIENT
  Age: 57 Year
  Sex: Female
  Weight: 95.2 kg

DRUGS (7)
  1. RAMIPRIL [Concomitant]
     Indication: HYPERTENSION
     Route: 065
  2. CHANTIX [Interacting]
     Indication: EX-TOBACCO USER
     Route: 048
     Dates: start: 20110401
  3. POTASSIUM [Concomitant]
     Indication: BLOOD POTASSIUM DECREASED
     Route: 065
  4. HYDROCHLOROTHIAZIDE [Concomitant]
     Indication: HYPERTENSION
     Route: 065
  5. CLONIDINE [Concomitant]
     Indication: HYPERTENSION
     Route: 065
  6. FERROUS SULFATE TAB [Concomitant]
     Indication: ANAEMIA
     Route: 065
  7. TOPAMAX [Suspect]
     Indication: BIPOLAR DISORDER
     Route: 048

REACTIONS (2)
  - DRUG INTERACTION [None]
  - MANIA [None]
